FAERS Safety Report 21574745 (Version 1)
Quarter: 2022Q4

REPORT INFORMATION
  Report Type: Spontaneous
  Country: BR (occurrence: BR)
  Receive Date: 20221109
  Receipt Date: 20221109
  Transmission Date: 20230113
  Serious: Yes (Other)
  Sender: FDA-Public Use
  Company Number: BR-SUN PHARMACEUTICAL INDUSTRIES LTD-2022R1-361835

PATIENT
  Age: 49 Year
  Sex: Male

DRUGS (2)
  1. NIMESULIDE [Suspect]
     Active Substance: NIMESULIDE
     Indication: Scleritis
     Dosage: 100 MILLIGRAM, BID
     Route: 065
  2. LOTEPREDNOL [Suspect]
     Active Substance: LOTEPREDNOL
     Indication: Scleritis
     Dosage: 1 DROP EVERY 4 H TAPERING EVERY THREE DAYS
     Route: 065

REACTIONS (1)
  - Condition aggravated [Unknown]
